FAERS Safety Report 8909855 (Version 1)
Quarter: 2012Q4

REPORT INFORMATION
  Report Type: 
  Country: GR (occurrence: GR)
  Receive Date: 20121115
  Receipt Date: 20121115
  Transmission Date: 20130627
  Serious: Yes (Other)
  Sender: FDA-Public Use
  Company Number: GR-PFIZER INC-2012268789

PATIENT
  Age: 55 Year
  Sex: Male

DRUGS (15)
  1. SUTENT [Suspect]
     Indication: RENAL CANCER METASTATIC
     Dosage: 50 mg, cyclic (4 weeks on/2 weeks off)
     Dates: start: 20111108, end: 2011
  2. SUTENT [Suspect]
     Dosage: 37.5 mg /daily, cyclic (4 weeks on/2 weeks off)
     Dates: start: 20111213, end: 20120319
  3. SUTENT [Suspect]
     Dosage: 37.5 mg /daily, cyclic (4 weeks on/2 weeks off)
     Dates: start: 2012, end: 20121015
  4. LOSEC [Concomitant]
     Indication: GASTRIC ULCER PROPHYLAXIS
     Dosage: 20 mg, 1x/day
  5. IDEOS [Concomitant]
     Indication: OSTEOPOROSIS PROPHYLAXIS
     Dosage: 1 DF, 2x/day
  6. IDEOS [Concomitant]
     Indication: THYROIDECTOMY
  7. TRIATEC [Concomitant]
     Indication: HYPERTENSION ARTERIAL
     Dosage: 5 mg, (1 tablet in the morning, half a tablet at night)
  8. EUTHYROX [Concomitant]
     Indication: HYPERTHYROIDISM
     Dosage: 100ug/125ug, alternate
  9. EUTHYROX [Concomitant]
     Indication: THYROIDECTOMY
  10. SALOSPIR [Concomitant]
     Indication: SICKLE CELL ANEMIA
     Dosage: 80 mg, 1x/day
  11. SALOSPIR [Concomitant]
     Indication: THROMBOSIS PROPHYLAXIS
  12. ALLOPURINOL [Concomitant]
     Indication: HYPERURICAEMIA
     Dosage: 300 mg, 1x/day
  13. CIPRALEX [Concomitant]
     Indication: DEPRESSION
     Dosage: 10 mg, half a tablet at noon, 1 tablet at night
  14. EZETIMIBE/SIMVASTATIN [Concomitant]
     Indication: DYSLIPIDAEMIA
     Dosage: 1 DF, 1x/day
  15. MIXTARD [Concomitant]
     Indication: TYPE II DIABETES MELLITUS
     Dosage: 10 IU, 8IU UNK

REACTIONS (9)
  - Acute febrile neutrophilic dermatosis [Unknown]
  - Thrombocytopenia [Recovered/Resolved]
  - Albuminuria [Unknown]
  - Blood thyroid stimulating hormone increased [Recovered/Resolved]
  - Gastrointestinal disorder [Recovered/Resolved]
  - Blood triglycerides increased [Unknown]
  - Thrombocytopenia [Unknown]
  - Hypertension [Unknown]
  - Epistaxis [Unknown]
